FAERS Safety Report 7272043-4 (Version None)
Quarter: 2011Q1

REPORT INFORMATION
  Report Type: 
  Country: None (occurrence: None)
  Receive Date: 20110203
  Receipt Date: 20110127
  Transmission Date: 20110831
  Serious: Yes (Other)
  Sender: FDA-Public Use
  Company Number: US-AMGEN-USASP2011005300

PATIENT
  Age: 20 Year
  Sex: Female
  Weight: 56.7 kg

DRUGS (2)
  1. UNSPECIFIED BIRTH CONTROL PILL [Concomitant]
  2. NEUPOGEN [Suspect]
     Indication: NEUTROPENIA
     Dosage: 90 A?G, QD
     Dates: start: 20100801

REACTIONS (3)
  - EMOTIONAL DISORDER [None]
  - WEIGHT DECREASED [None]
  - ALOPECIA [None]
